FAERS Safety Report 5643077-8 (Version None)
Quarter: 2008Q1

REPORT INFORMATION
  Report Type: 
  Country: None (occurrence: None)
  Receive Date: 20080227
  Receipt Date: 20080227
  Transmission Date: 20080703
  Serious: Yes (Life-Threatening, Hospitalization)
  Sender: FDA-Public Use
  Company Number: None

PATIENT
  Age: 81 Year
  Sex: Male
  Weight: 101.6057 kg

DRUGS (3)
  1. WARFARIN SODIUM [Suspect]
     Indication: ATRIAL FIBRILLATION
     Dosage: 2.5MG EVERY DAY PO
     Route: 048
     Dates: end: 20080121
  2. WARFARIN SODIUM [Suspect]
     Indication: CEREBROVASCULAR ACCIDENT
     Dosage: 2.5MG EVERY DAY PO
     Route: 048
     Dates: end: 20080121
  3. ENOXAPARIN [Suspect]
     Indication: ANTICOAGULANT THERAPY
     Dosage: 100MG EVERY DAY PO
     Route: 048
     Dates: start: 20080117, end: 20080121

REACTIONS (8)
  - ABDOMINAL DISTENSION [None]
  - HAEMATOCRIT [None]
  - HAEMATOCRIT DECREASED [None]
  - HYPOTENSION [None]
  - HYPOVOLAEMIA [None]
  - JOINT SWELLING [None]
  - RENAL FAILURE ACUTE [None]
  - RETROPERITONEAL HAEMORRHAGE [None]
